FAERS Safety Report 19231345 (Version 2)
Quarter: 2021Q2

REPORT INFORMATION
  Report Type: Report from Study
  Country: CA (occurrence: CA)
  Receive Date: 20210507
  Receipt Date: 20210510
  Transmission Date: 20210717
  Serious: Yes (Other)
  Sender: FDA-Public Use
  Company Number: CA-TEVA-2021-CA-1907889

PATIENT
  Age: 28 Year
  Sex: Female

DRUGS (2)
  1. VITAMIN B12 [Concomitant]
     Active Substance: CYANOCOBALAMIN
  2. COPAXONE [Suspect]
     Active Substance: GLATIRAMER ACETATE
     Indication: MULTIPLE SCLEROSIS
     Dates: start: 20180903

REACTIONS (8)
  - Off label use [Unknown]
  - Near death experience [Recovering/Resolving]
  - Movement disorder [Recovering/Resolving]
  - Dyspnoea [Recovering/Resolving]
  - Blindness [Recovering/Resolving]
  - Dizziness [Recovering/Resolving]
  - Intracranial pressure increased [Recovering/Resolving]
  - Feeling hot [Recovering/Resolving]

NARRATIVE: CASE EVENT DATE: 20210427
